FAERS Safety Report 4370960-6 (Version None)
Quarter: 2004Q2

REPORT INFORMATION
  Report Type: 
  Country: None (occurrence: None)
  Receive Date: 20040601
  Receipt Date: 20030926
  Transmission Date: 20050107
  Serious: Yes (Hospitalization)
  Sender: FDA-Public Use
  Company Number: M2004.0518

PATIENT
  Age: 72 Year
  Sex: Female

DRUGS (12)
  1. FUROSEMIDE [Suspect]
     Dates: start: 20030401
  2. ENALAPRIL MALEATE [Suspect]
     Dosage: 20 MG PO QD
     Route: 048
     Dates: start: 20030417, end: 20030721
  3. METFORMIN HCL [Concomitant]
  4. METOPROLOL TARTRATE [Concomitant]
  5. ACETAMINOPHEN [Concomitant]
  6. IRON [Concomitant]
  7. PREDNISOLONE [Concomitant]
  8. SIMVASTATIN [Concomitant]
  9. TROMBYL (ASA) [Concomitant]
  10. OESTRIL NM PHARMA (OESTROGEN) [Concomitant]
  11. SILNOCT (ZOLPIDEMHEMITARTRAT) [Concomitant]
  12. NEURONTIN [Concomitant]

REACTIONS (2)
  - RASH [None]
  - TOXIC EPIDERMAL NECROLYSIS [None]
